FAERS Safety Report 6912515-2 (Version None)
Quarter: 2010Q4

REPORT INFORMATION
  Report Type: 
  Country: None (occurrence: None)
  Receive Date: 20100806
  Receipt Date: 20080620
  Transmission Date: 20110411
  Serious: No
  Sender: FDA-Public Use
  Company Number: US-PFIZER INC-2008034548

PATIENT
  Sex: Female

DRUGS (4)
  1. DILANTIN [Suspect]
     Indication: CONVULSION
  2. REVLIMID [Interacting]
     Indication: MULTIPLE MYELOMA
     Route: 048
     Dates: start: 20060301
  3. DEXAMETHASONE [Concomitant]
  4. COUMADIN [Concomitant]

REACTIONS (1)
  - DRUG INTERACTION [None]
